FAERS Safety Report 6029936-5 (Version None)
Quarter: 2009Q1

REPORT INFORMATION
  Report Type: 
  Country: None (occurrence: None)
  Receive Date: 20090107
  Receipt Date: 20080606
  Transmission Date: 20090719
  Serious: No
  Sender: FDA-Public Use
  Company Number: US-BRISTOL-MYERS SQUIBB COMPANY-14219463

PATIENT
  Sex: Male

DRUGS (5)
  1. TRAZODONE HCL [Suspect]
     Indication: INSOMNIA
     Dosage: QHS-EVERY NIGHT
     Route: 048
     Dates: start: 20080501, end: 20080519
  2. ROZEREM [Suspect]
     Indication: INSOMNIA
     Dosage: QHS,(8MG)07MAY08-19MAY08;19MAY08 (16 MG)
     Route: 048
     Dates: start: 20080507
  3. CELEXA [Concomitant]
     Indication: ANXIETY
     Route: 048
     Dates: start: 20030101
  4. ALLOPURINOL [Concomitant]
     Indication: GOUT
     Route: 048
     Dates: start: 20030101
  5. LOTENSIN [Concomitant]
     Indication: HYPERTENSION
     Route: 048
     Dates: start: 20040101

REACTIONS (4)
  - AGITATION [None]
  - ANGER [None]
  - HANGOVER [None]
  - SOMNOLENCE [None]
